FAERS Safety Report 9869255 (Version 2)
Quarter: 2014Q1

REPORT INFORMATION
  Report Type: Other
  Country: IT (occurrence: IT)
  Receive Date: 20140205
  Receipt Date: 20140219
  Transmission Date: 20141002
  Serious: Yes (Hospitalization)
  Sender: FDA-Public Use
  Company Number: IT-SUN PHARMACEUTICAL INDUSTRIES LTD-2014SUN00208

PATIENT
  Age: 83 Year
  Sex: Male

DRUGS (2)
  1. OLANZAPINA SUN 10 MG COMPRESSA [Suspect]
     Indication: ABNORMAL BEHAVIOUR
     Dosage: 10 MG, OD
     Route: 048
     Dates: start: 20131119, end: 20131204
  2. CLEXANE ^4000 UI AXA SOLUZIONE INIETTABILE^ 6 SIRINGHE PRERIEMPITE DA [Concomitant]

REACTIONS (3)
  - Bone marrow failure [Recovering/Resolving]
  - Pancytopenia [Recovering/Resolving]
  - Leukopenia [Recovering/Resolving]
